FAERS Safety Report 10314808 (Version 1)
Quarter: 2014Q3

REPORT INFORMATION
  Report Type: Spontaneous
  Country: GB (occurrence: GB)
  Receive Date: 20140718
  Receipt Date: 20140718
  Transmission Date: 20150326
  Serious: Yes (Other)
  Sender: FDA-Public Use
  Company Number: GB-MYLANLABS-2014S1016318

PATIENT
  Age: 65 Year
  Sex: Male
  Weight: 85 kg

DRUGS (13)
  1. SIMVASTATIN. [Concomitant]
     Active Substance: SIMVASTATIN
     Dates: start: 20140304, end: 20140620
  2. CALCICHEW D3 [Concomitant]
     Active Substance: CALCIUM\CHOLECALCIFEROL
     Dates: start: 20140304, end: 20140622
  3. LIDOCAINE. [Concomitant]
     Active Substance: LIDOCAINE
     Dates: start: 20140507, end: 20140508
  4. PREDNISOLONE. [Concomitant]
     Active Substance: PREDNISOLONE
     Dates: start: 20140331, end: 20140524
  5. AZATHIOPRINE. [Suspect]
     Active Substance: AZATHIOPRINE
  6. ALENDRONIC ACID [Concomitant]
     Active Substance: ALENDRONIC ACID
     Dates: start: 20140304, end: 20140620
  7. TIOTROPIUM [Concomitant]
     Active Substance: TIOTROPIUM
     Dates: start: 20140304, end: 20140622
  8. COCODAMOL [Concomitant]
     Active Substance: ACETAMINOPHEN\CODEINE PHOSPHATE
     Dates: start: 20140304, end: 20140620
  9. NAPROXEN. [Concomitant]
     Active Substance: NAPROXEN
     Dates: start: 20140507, end: 20140521
  10. OMEPRAZOLE. [Concomitant]
     Active Substance: OMEPRAZOLE
     Dates: start: 20140507, end: 20140604
  11. SALBUTAMOL [Concomitant]
     Active Substance: ALBUTEROL
     Dates: start: 20140304, end: 20140620
  12. SERETIDE [Concomitant]
     Active Substance: FLUTICASONE FUROATE\SALMETEROL XINAFOATE
     Dates: start: 20140314, end: 20140622
  13. KENALOG /00031902/ [Concomitant]
     Dates: start: 20140507, end: 20140508

REACTIONS (4)
  - Pyrexia [Recovered/Resolved]
  - Headache [Recovered/Resolved]
  - Hypotension [Recovered/Resolved]
  - Chills [Recovered/Resolved]

NARRATIVE: CASE EVENT DATE: 20140623
